FAERS Safety Report 14954042 (Version 1)
Quarter: 2018Q2

REPORT INFORMATION
  Report Type: Spontaneous
  Country: US (occurrence: US)
  Receive Date: 20180530
  Receipt Date: 20180530
  Transmission Date: 20180711
  Serious: No
  Sender: FDA-Public Use
  Company Number: US-LEXICON PHARMACEUTICALS, INC-18-1606-00421

PATIENT
  Age: 69 Year
  Sex: Female

DRUGS (4)
  1. TELOTRISTAT ETHYL [Suspect]
     Active Substance: TELOTRISTAT ETHYL
     Indication: PANCREATIC CARCINOMA
     Route: 048
     Dates: start: 20180323
  2. TELOTRISTAT ETHYL [Suspect]
     Active Substance: TELOTRISTAT ETHYL
     Indication: VIPOMA
  3. LANREOTIDE [Concomitant]
     Active Substance: LANREOTIDE
     Indication: PANCREATIC CARCINOMA
     Dates: start: 20180404
  4. SUTENT [Concomitant]
     Active Substance: SUNITINIB MALATE
     Indication: VIPOMA

REACTIONS (1)
  - Diarrhoea [Recovering/Resolving]

NARRATIVE: CASE EVENT DATE: 201804
